FAERS Safety Report 16122424 (Version 1)
Quarter: 2019Q2

REPORT INFORMATION
  Report Type: Spontaneous
  Country: GB (occurrence: GB)
  Receive Date: 20190326
  Receipt Date: 20190326
  Transmission Date: 20190711
  Serious: Yes (Disabling)
  Sender: FDA-Public Use
  Company Number: None

PATIENT
  Age: 34 Year
  Sex: Female
  Weight: 63 kg

DRUGS (1)
  1. BOTULINUM TOXIN A [Suspect]
     Active Substance: BOTULINUM TOXIN TYPE A
     Indication: SKIN COSMETIC PROCEDURE
     Dosage: ?          QUANTITY:20 INJECTION(S);OTHER FREQUENCY:ONCE ONLY;?
     Route: 030
     Dates: start: 20190221, end: 20190221

REACTIONS (15)
  - Muscle tightness [None]
  - Dry eye [None]
  - Asthenopia [None]
  - Dissociation [None]
  - Dry mouth [None]
  - Throat tightness [None]
  - Vision blurred [None]
  - Anxiety [None]
  - Disturbance in attention [None]
  - Dizziness [None]
  - Periorbital oedema [None]
  - Ocular discomfort [None]
  - Tension headache [None]
  - Paraesthesia [None]
  - Lymphadenopathy [None]

NARRATIVE: CASE EVENT DATE: 20190221
